FAERS Safety Report 11109237 (Version 7)
Quarter: 2017Q4

REPORT INFORMATION
  Report Type: Report from Study
  Country: IT (occurrence: IT)
  Receive Date: 20150513
  Receipt Date: 20171122
  Transmission Date: 20180320
  Serious: Yes (Death, Hospitalization)
  Sender: FDA-Public Use
  Company Number: IT-JNJFOC-20150503395

PATIENT
  Age: 48 Year
  Sex: Male
  Weight: 80 kg

DRUGS (7)
  1. OMEPRAZOLE. [Concomitant]
     Active Substance: OMEPRAZOLE
     Indication: VARICES OESOPHAGEAL
     Route: 048
     Dates: start: 201411
  2. OLYSIO [Suspect]
     Active Substance: SIMEPREVIR
     Indication: HEPATITIS C
     Route: 048
     Dates: start: 20150325, end: 20150501
  3. PROPRANOLOL [Concomitant]
     Active Substance: PROPRANOLOL HYDROCHLORIDE
     Indication: VARICES OESOPHAGEAL
     Route: 048
     Dates: start: 201411
  4. NAAXIA [Concomitant]
     Indication: OCULAR HYPERAEMIA
     Route: 061
     Dates: start: 20150413
  5. SOVALDI [Concomitant]
     Active Substance: SOFOSBUVIR
     Indication: HEPATITIS C
     Route: 048
     Dates: start: 20150325, end: 20150501
  6. ENALAPRIL [Concomitant]
     Active Substance: ENALAPRIL
     Indication: HYPERTENSION
     Route: 048
     Dates: start: 2013
  7. EXOCIN [Concomitant]
     Active Substance: OFLOXACIN
     Indication: OCULAR HYPERAEMIA
     Route: 061
     Dates: start: 20150413

REACTIONS (10)
  - Pneumonia [Not Recovered/Not Resolved]
  - Pancreatitis [Unknown]
  - Vomiting [Unknown]
  - Jaundice [Unknown]
  - Diarrhoea [Unknown]
  - Respiratory failure [Fatal]
  - Pyrexia [Unknown]
  - Acute hepatic failure [Fatal]
  - Bronchopulmonary aspergillosis [Fatal]
  - Cough [Unknown]

NARRATIVE: CASE EVENT DATE: 20150427
